FAERS Safety Report 14767500 (Version 2)
Quarter: 2018Q2

REPORT INFORMATION
  Report Type: Spontaneous
  Country: US (occurrence: US)
  Receive Date: 20180417
  Receipt Date: 20180419
  Transmission Date: 20180711
  Serious: No
  Sender: FDA-Public Use
  Company Number: US-PFIZER INC-2018155334

PATIENT
  Age: 41 Year
  Sex: Female

DRUGS (1)
  1. XELJANZ XR [Suspect]
     Active Substance: TOFACITINIB CITRATE
     Dosage: 1 TAB, DAILY
     Route: 048
     Dates: start: 20180409, end: 20180411

REACTIONS (3)
  - Nausea [Unknown]
  - Headache [Unknown]
  - Dizziness [Unknown]
